FAERS Safety Report 8833250 (Version 2)
Quarter: 2012Q4

REPORT INFORMATION
  Report Type: 
  Country: JP (occurrence: JP)
  Receive Date: 20121010
  Receipt Date: 20121123
  Transmission Date: 20130627
  Serious: Yes (Other)
  Sender: FDA-Public Use
  Company Number: PHHY2012JP088364

PATIENT
  Age: 66 Year
  Sex: Female

DRUGS (11)
  1. ZOMETA [Suspect]
     Indication: METASTASES TO BONE
     Dosage: 4 mg, per administration
     Route: 041
     Dates: start: 20101013
  2. ZOMETA [Suspect]
     Dosage: 4 mg, per administration
     Route: 041
  3. ZOMETA [Suspect]
     Dosage: UNK UKN, UNK
     Dates: start: 20111026
  4. ZOMETA [Suspect]
     Dosage: UNK UKN, UNK
     Dates: start: 20120124
  5. ZOMETA [Suspect]
     Dosage: UNK UKN, UNK
     Dates: start: 20120221
  6. FEMARA [Concomitant]
     Indication: BREAST CANCER
     Dosage: 2.5 mg, UNK
     Route: 048
     Dates: start: 20110721
  7. FLUOROURACIL [Concomitant]
     Indication: BREAST CANCER
     Dosage: 800 mg, UNK
     Route: 042
     Dates: start: 20100721, end: 20100922
  8. EPIRUBICIN HYDROCHLORIDE [Concomitant]
     Indication: BREAST CANCER
     Dosage: 160 mg, UNK
     Route: 042
     Dates: start: 20100721, end: 20100922
  9. CYCLOPHOSPHAMIDE HYDRATE [Concomitant]
     Indication: BREAST CANCER
     Dosage: 800 mg, UNK
     Route: 042
     Dates: start: 20100721, end: 20100922
  10. DOCETAXEL HYDRATE [Concomitant]
     Indication: BREAST CANCER
     Dosage: 90 mg, UNK
     Route: 042
     Dates: start: 20101013, end: 20110127
  11. CHEMOTHERAPEUTICS [Concomitant]
     Dosage: UNK UKN, UNK
     Dates: start: 20100721, end: 20110127

REACTIONS (6)
  - Osteonecrosis of jaw [Recovered/Resolved]
  - Exposed bone in jaw [Unknown]
  - Tooth avulsion [Unknown]
  - Gingival erythema [Recovered/Resolved]
  - Bone swelling [Recovered/Resolved]
  - Osteomyelitis [Recovered/Resolved]
